FAERS Safety Report 12380557 (Version 2)
Quarter: 2016Q2

REPORT INFORMATION
  Report Type: Report from Study
  Country: US (occurrence: US)
  Receive Date: 20160518
  Receipt Date: 20160518
  Transmission Date: 20160815
  Serious: Yes (Hospitalization, Disabling)
  Sender: FDA-Public Use
  Company Number: PHHO2014US020000

PATIENT
  Sex: Male

DRUGS (9)
  1. OFATUMUMAB [Suspect]
     Active Substance: OFATUMUMAB
     Indication: MANTLE CELL LYMPHOMA
     Dosage: 1000 MG, CYCLIC X EVERY DAY 1 FOR 6 CYCLES
     Route: 042
     Dates: start: 20140724
  2. ACYCLOVIR. [Concomitant]
     Active Substance: ACYCLOVIR
     Indication: PROPHYLAXIS
     Route: 065
  3. LEVAQUIN [Concomitant]
     Active Substance: LEVOFLOXACIN
     Indication: PROPHYLAXIS
     Route: 065
  4. METHOTREXATE [Suspect]
     Active Substance: METHOTREXATE
     Indication: MANTLE CELL LYMPHOMA
     Dosage: 1000 MG/M2, CYCLIC 1 DOSE ON DAY 3 C2, 4, 6
     Route: 042
     Dates: start: 20140820
  5. CYTARABINE. [Suspect]
     Active Substance: CYTARABINE
     Indication: MANTLE CELL LYMPHOMA
     Dosage: 3000 MG/M2, CYCLIC EVERY 12 HOURS X 4 DOSES C2, 4, 6
     Route: 065
     Dates: start: 20140821
  6. FLUCONAZOLE. [Concomitant]
     Active Substance: FLUCONAZOLE
     Indication: PROPHYLAXIS
     Route: 065
  7. CYCLOPHOSPHAMIDE. [Suspect]
     Active Substance: CYCLOPHOSPHAMIDE
     Indication: MANTLE CELL LYMPHOMA
     Dosage: 300 MG/M2, CYCLIC EVERY 12 HOURS X 6 DOSES C1,3,5
     Route: 042
     Dates: start: 20140727
  8. DOXORUBICIN [Suspect]
     Active Substance: DOXORUBICIN
     Indication: MANTLE CELL LYMPHOMA
     Dosage: 16.6 MG/M2, CYCLIC DAILY X 3 DAYS C1,3,5
     Route: 042
     Dates: start: 20140730
  9. VINCRISTINE [Suspect]
     Active Substance: VINCRISTINE
     Indication: MANTLE CELL LYMPHOMA
     Dosage: 1.4 MG/M2, CYCLIC 1 DOSE ON DAYS 6 AND 13 C1,3, 5
     Route: 042
     Dates: start: 20140730

REACTIONS (5)
  - Neutropenia [Recovered/Resolved with Sequelae]
  - Laceration [Unknown]
  - Wound [Recovering/Resolving]
  - Arachnoiditis [Recovered/Resolved with Sequelae]
  - Blister [Recovering/Resolving]

NARRATIVE: CASE EVENT DATE: 20140825
